FAERS Safety Report 5149500-X (Version None)
Quarter: 2006Q4

REPORT INFORMATION
  Report Type: 
  Country: None (occurrence: None)
  Receive Date: 20061113
  Receipt Date: 20060215
  Transmission Date: 20070319
  Serious: Yes (Other)
  Sender: FDA-Public Use
  Company Number: 437267

PATIENT
  Age: 50 Year
  Sex: Female

DRUGS (1)
  1. COREG [Suspect]
     Dosage: 25MG FOUR TIMES PER DAY
     Route: 048
     Dates: start: 19990101

REACTIONS (2)
  - ALANINE AMINOTRANSFERASE INCREASED [None]
  - ASPARTATE AMINOTRANSFERASE INCREASED [None]
